FAERS Safety Report 16792310 (Version 10)
Quarter: 2020Q1

REPORT INFORMATION
  Report Type: Spontaneous
  Country: CA (occurrence: CA)
  Receive Date: 20190910
  Receipt Date: 20200124
  Transmission Date: 20200409
  Serious: Yes (Hospitalization, Other)
  Sender: FDA-Public Use
  Company Number: CA-PFIZER INC-2019380220

PATIENT
  Age: 79 Year
  Sex: Female
  Weight: 74 kg

DRUGS (23)
  1. TYLENOL ARTHRITIS PAIN [Concomitant]
     Active Substance: ACETAMINOPHEN
     Indication: PAIN
     Dosage: 650 MG, 2X/DAY
     Route: 048
  2. APO-FLECAINIDE [Concomitant]
     Indication: ARRHYTHMIA
     Dosage: 100 MG, 2X/DAY
     Route: 048
  3. ERYTHROMYCIN. [Concomitant]
     Active Substance: ERYTHROMYCIN
     Dosage: UNK UNK, 4X/DAY (APPLY TO EYE QID FOR 7 DAYS)
     Route: 061
     Dates: start: 201909, end: 201909
  4. INFLECTRA [Concomitant]
     Active Substance: INFLIXIMAB-DYYB
     Indication: RHEUMATOID ARTHRITIS
     Dosage: 400 MG, CYCLIC (Q 0, 2, 6 WEEKS, THEN EVERY 8 WEEKS)
     Route: 042
     Dates: start: 20191203
  5. APO-ATORVASTATIN [Concomitant]
     Active Substance: ATORVASTATIN
     Indication: BLOOD CHOLESTEROL INCREASED
     Dosage: 40 MG, 1X/DAY AT BEDTIME
     Route: 048
  6. JAMP VITAMIN D [Concomitant]
     Dosage: 10000 UI, TAB, 2 TABS ONCE WEEKLY
     Route: 048
  7. REFRESH CELLUVISC [Concomitant]
     Active Substance: CARBOXYMETHYLCELLULOSE SODIUM
     Dosage: 1 GTT, CYCLIC (1 DROP LEFT EYE EVERY 4 HOURS )
     Route: 047
  8. METHOTREXATE SODIUM. [Suspect]
     Active Substance: METHOTREXATE SODIUM
     Dosage: 20 MG, WEEKLY
     Dates: start: 20191219
  9. FOLIC ACID GENERIC [Concomitant]
     Dosage: 5 MG, 2X/WEEK (NOT ON MTX DAY)
     Route: 048
  10. SANDOZ PANTOPRAZOL [Concomitant]
     Indication: GASTROOESOPHAGEAL REFLUX DISEASE
     Dosage: 40 MG, 1X/DAY IN THE MORNING
     Route: 048
  11. RAMIPRIL. [Concomitant]
     Active Substance: RAMIPRIL
     Indication: ANGINA PECTORIS
     Dosage: 5 MG, 1X/DAY AT BEDTIME
     Route: 048
  12. XARELTO [Concomitant]
     Active Substance: RIVAROXABAN
     Indication: ANTICOAGULANT THERAPY
     Dosage: 20 MG, 1X/DAY
     Route: 048
  13. PMS-NYSTATIN [Concomitant]
     Dosage: 5 ML, SWISH AND SPIT QID (4 TIMES A DAY)
     Route: 048
  14. FLOVENT HFA [Concomitant]
     Active Substance: FLUTICASONE PROPIONATE
     Dosage: 250 UG, 2X/DAY
     Route: 055
  15. SANDOZ FLUOROMETHOLONE [Concomitant]
     Active Substance: FLUOROMETHOLONE
     Dosage: 1 GTT, 1X/DAY
     Route: 061
  16. JAMP CALCIUM [Concomitant]
     Dosage: 500 MG, 2X/DAY
     Route: 048
  17. METHOTREXATE SODIUM. [Suspect]
     Active Substance: METHOTREXATE SODIUM
     Dosage: 20 MG, WEEKLY
     Dates: start: 2019
  18. TYLENOL ARTHRITIS PAIN [Concomitant]
     Active Substance: ACETAMINOPHEN
     Dosage: 650MG, 2 TABS BID
     Route: 048
  19. VENTOLIN HFA [Concomitant]
     Active Substance: ALBUTEROL SULFATE
     Dosage: 100 UG, 4X/DAY
     Route: 055
  20. MINERAL OIL. [Concomitant]
     Active Substance: MINERAL OIL
     Dosage: APPLY TO EYES HS (AT BEDTIME)
     Route: 061
  21. APO-NADOL [Concomitant]
     Active Substance: NADOLOL
     Indication: HYPERTENSION
     Dosage: 80 MG, 2X/DAY
     Route: 048
  22. OCUFLOX [Concomitant]
     Active Substance: OFLOXACIN
     Dosage: 1 DROP QID, EVERY 4 TO 6 HOURS FOR 7 DAYS
     Route: 061
  23. SYNTHROID [Concomitant]
     Active Substance: LEVOTHYROXINE SODIUM
     Indication: THYROID GLAND SCAN ABNORMAL
     Dosage: 0.112 MG, 1X/DAY IN THE MORNING
     Route: 048

REACTIONS (11)
  - Rheumatoid arthritis [Unknown]
  - Eye infection [Unknown]
  - Influenza [Unknown]
  - Neck pain [Unknown]
  - Keratitis [Recovering/Resolving]
  - Asthenia [Unknown]
  - Pneumonia [Recovering/Resolving]
  - Wound dehiscence [Recovering/Resolving]
  - Impaired healing [Recovering/Resolving]
  - Drug ineffective [Unknown]
  - Loss of personal independence in daily activities [Unknown]

NARRATIVE: CASE EVENT DATE: 2019
